FAERS Safety Report 14450664 (Version 2)
Quarter: 2018Q3

REPORT INFORMATION
  Report Type: Spontaneous
  Country: FR (occurrence: FR)
  Receive Date: 20180129
  Receipt Date: 20180921
  Transmission Date: 20181010
  Serious: Yes (Other)
  Sender: FDA-Public Use
  Company Number: FR-MERCK KGAA-2040933

PATIENT
  Age: 73 Year
  Sex: Female

DRUGS (2)
  1. EUTHYROX [Suspect]
     Active Substance: LEVOTHYROXINE SODIUM
     Indication: RADIOACTIVE IODINE THERAPY
     Dates: start: 2017, end: 201710
  2. EUTHYROX [Suspect]
     Active Substance: LEVOTHYROXINE SODIUM
     Dates: start: 201711, end: 201711

REACTIONS (10)
  - Fatigue [None]
  - Blood thyroid stimulating hormone abnormal [None]
  - Malaise [None]
  - Loss of consciousness [None]
  - Muscle spasms [None]
  - Weight increased [None]
  - Dizziness [None]
  - Face oedema [None]
  - Musculoskeletal stiffness [None]
  - Oedema peripheral [None]

NARRATIVE: CASE EVENT DATE: 2017
